FAERS Safety Report 6970447-8 (Version None)
Quarter: 2010Q3

REPORT INFORMATION
  Report Type: 
  Country: None (occurrence: None)
  Receive Date: 20100908
  Receipt Date: 20100901
  Transmission Date: 20110219
  Serious: Yes (Hospitalization)
  Sender: FDA-Public Use
  Company Number: IT-ELI_LILLY_AND_COMPANY-IT201009001087

PATIENT
  Sex: Male
  Weight: 80 kg

DRUGS (7)
  1. PRASUGREL HYDROCHLORIDE [Suspect]
     Indication: ACUTE CORONARY SYNDROME
     Dates: start: 20100802, end: 20100901
  2. ASPIRIN [Concomitant]
     Dosage: 100 MG, UNK
     Dates: start: 20100729
  3. BISOPROLOL FUMARATE [Concomitant]
     Dates: start: 20100730
  4. RAMIPRIL [Concomitant]
     Dates: start: 20100729
  5. ATORVASTATINA [Concomitant]
     Indication: PROPHYLAXIS
     Dosage: 80 MG, UNK
     Dates: start: 20100729
  6. RANITIDINA [Concomitant]
     Dosage: 150 MG, UNK
     Dates: start: 20100729
  7. ALLOPURINOL [Concomitant]
     Indication: PROPHYLAXIS
     Dates: start: 20100730

REACTIONS (1)
  - ACUTE MYOCARDIAL INFARCTION [None]
